FAERS Safety Report 7583002-6 (Version None)
Quarter: 2011Q2

REPORT INFORMATION
  Report Type: 
  Country: None (occurrence: None)
  Receive Date: 20110527
  Receipt Date: 20110127
  Transmission Date: 20111010
  Serious: Yes (Hospitalization, Other)
  Sender: FDA-Public Use
  Company Number: US201005000729

PATIENT
  Age: 46 Year
  Sex: Male
  Weight: 142.9 kg

DRUGS (23)
  1. LISINOPRIL /USA/ (LISINOPRIL) [Concomitant]
  2. ATROPINE [Concomitant]
  3. FLOMAX [Concomitant]
  4. FUROSEMIDE [Concomitant]
  5. PRILOSEC [Concomitant]
  6. ASPIRIN [Concomitant]
  7. BYETTA [Suspect]
     Indication: WEIGHT DECREASED
     Dosage: SUBCUTANEOUS, 10 UG, 2/D, 10 UG, 2/D, SUBCUTANEOUS
     Route: 058
     Dates: start: 20090524
  8. BYETTA [Suspect]
     Indication: WEIGHT DECREASED
     Dosage: SUBCUTANEOUS, 10 UG, 2/D, 10 UG, 2/D, SUBCUTANEOUS
     Route: 058
     Dates: start: 20040401
  9. BYETTA [Suspect]
     Indication: WEIGHT DECREASED
     Dosage: SUBCUTANEOUS, 10 UG, 2/D, 10 UG, 2/D, SUBCUTANEOUS
     Route: 058
     Dates: start: 20041217
  10. VERAPAMIL [Concomitant]
  11. BYSTOLIC [Concomitant]
  12. LOTREL [Concomitant]
  13. HUMALOG [Concomitant]
  14. NORVASC [Concomitant]
  15. EXENATIDE UNK STRENGTH PEN, DISPOSABLE DEVICE (EXENATIDE PEN (UNKNOWN [Concomitant]
  16. NOVOLOG [Concomitant]
  17. GLIMEPIRIDE [Concomitant]
  18. CAPTOPRIL [Concomitant]
  19. MVI /USA/ (VITAMINS NOS) [Concomitant]
  20. VYTORIN [Concomitant]
  21. ACTOS [Concomitant]
  22. PROPOXYPHENE(DEXTROPROOXYPHENE) [Concomitant]
  23. RENAGEL [Concomitant]

REACTIONS (4)
  - RENAL FAILURE CHRONIC [None]
  - PANCREATITIS [None]
  - RENAL FAILURE ACUTE [None]
  - OFF LABEL USE [None]
